FAERS Safety Report 8012587-0 (Version None)
Quarter: 2011Q4

REPORT INFORMATION
  Report Type: 
  Country: None (occurrence: None)
  Receive Date: 20111223
  Receipt Date: 20111223
  Transmission Date: 20120403
  Serious: Yes (Other)
  Sender: FDA-Public Use
  Company Number: None

PATIENT
  Age: 42 Year
  Sex: Male
  Weight: 122.4712 kg

DRUGS (2)
  1. FLUOXETINE [Suspect]
     Indication: BIPOLAR II DISORDER
     Dosage: FLUOXETINE 60MG QHS CAPS
     Dates: start: 20111109
  2. FLUOXETINE [Suspect]
     Dosage: FLUOXETINE 60MG QHS TABS
     Dates: start: 20111215

REACTIONS (3)
  - SINUS CONGESTION [None]
  - ABDOMINAL PAIN UPPER [None]
  - PALPITATIONS [None]
